FAERS Safety Report 7449126-9 (Version None)
Quarter: 2011Q2

REPORT INFORMATION
  Report Type: 
  Country: None (occurrence: None)
  Receive Date: 20110502
  Receipt Date: 20110331
  Transmission Date: 20111010
  Serious: Yes (Hospitalization)
  Sender: FDA-Public Use
  Company Number: US-BAYER-201014780NA

PATIENT
  Age: 29 Year
  Sex: Female
  Weight: 91.156 kg

DRUGS (6)
  1. PEPCID [Concomitant]
     Dosage: 20 MG, UNK
  2. OXYGEN [Concomitant]
     Dosage: UNK
     Dates: start: 20081216
  3. YAZ [Suspect]
     Dosage: AS USED DOSE: UNK
     Route: 048
  4. FRAGMIN [Concomitant]
     Route: 058
  5. MORPHINE [Concomitant]
     Dosage: 5 MG, PRN
     Route: 042
  6. PERCOCET [Concomitant]
     Indication: PAIN
     Dosage: 325 MG, PRN
     Route: 048

REACTIONS (2)
  - PULMONARY EMBOLISM [None]
  - CHEST PAIN [None]
